FAERS Safety Report 5888538-1 (Version None)
Quarter: 2008Q3

REPORT INFORMATION
  Report Type: 
  Country: None (occurrence: None)
  Receive Date: 20080918
  Receipt Date: 20080905
  Transmission Date: 20090109
  Serious: No
  Sender: FDA-Public Use
  Company Number: US-B.I. PHARMACEUTICALS,INC./RIDGEFIELD-2008-BP-06743BP

PATIENT
  Age: 65 Year
  Sex: Female

DRUGS (3)
  1. MIRAPEX [Suspect]
     Indication: RESTLESS LEGS SYNDROME
     Dosage: .5MG
     Route: 048
     Dates: start: 20070101, end: 20080429
  2. LEVOTHYROXINE SODIUM [Concomitant]
     Indication: THYROID DISORDER
     Dosage: 150MCG
  3. ACIPHEX [Concomitant]
     Indication: GASTROOESOPHAGEAL REFLUX DISEASE
     Dosage: 40MG

REACTIONS (2)
  - HERPES ZOSTER [None]
  - PATHOLOGICAL GAMBLING [None]
